FAERS Safety Report 13321789 (Version 1)
Quarter: 2017Q1

REPORT INFORMATION
  Report Type: Other
  Country: DK (occurrence: DK)
  Receive Date: 20170309
  Receipt Date: 20170309
  Transmission Date: 20170428
  Serious: Yes (Death, Hospitalization)
  Sender: FDA-Public Use
  Company Number: DK-HETERO LABS LTD-1064017

PATIENT
  Age: 84 Year
  Sex: Male

DRUGS (9)
  1. MIRTAZAPINE. [Suspect]
     Active Substance: MIRTAZAPINE
  2. OXAZEPAM. [Suspect]
     Active Substance: OXAZEPAM
  3. ACETYLSALICYLIC ACID [Suspect]
     Active Substance: ASPIRIN
  4. TRANDOLAPRIL. [Suspect]
     Active Substance: TRANDOLAPRIL
  5. METOPROLOL SUCCINATE. [Suspect]
     Active Substance: METOPROLOL SUCCINATE
  6. NIFEDIPINE. [Suspect]
     Active Substance: NIFEDIPINE
  7. IVABRADINE [Suspect]
     Active Substance: IVABRADINE
  8. SIMVASTATIN. [Suspect]
     Active Substance: SIMVASTATIN
     Indication: PRODUCT USED FOR UNKNOWN INDICATION
     Route: 065
  9. PARACETAMOL [Suspect]
     Active Substance: ACETAMINOPHEN

REACTIONS (6)
  - Bezoar [Fatal]
  - Oesophageal obstruction [Fatal]
  - Pneumonia aspiration [Fatal]
  - Intentional overdose [Fatal]
  - Suicide attempt [Fatal]
  - Hypotension [Fatal]
